FAERS Safety Report 17233436 (Version 3)
Quarter: 2020Q2

REPORT INFORMATION
  Report Type: Spontaneous
  Country: GB (occurrence: GB)
  Receive Date: 20200104
  Receipt Date: 20200606
  Transmission Date: 20200713
  Serious: Yes (Life-Threatening, Hospitalization, Other)
  Sender: FDA-Public Use
  Company Number: GB-ACCORD-168155

PATIENT
  Age: 45 Year
  Sex: Female
  Weight: 78 kg

DRUGS (2)
  1. SERTRALINE [Suspect]
     Active Substance: SERTRALINE HYDROCHLORIDE
     Indication: DEPRESSION
     Dosage: 100 MG OD INCREASED TO 200 MG OD
     Dates: start: 201506, end: 20180926
  2. LANSOPRAZOLE. [Concomitant]
     Active Substance: LANSOPRAZOLE
     Dosage: 30 MG ONCE DAILY?(OD)

REACTIONS (2)
  - Hypersensitivity pneumonitis [Recovered/Resolved with Sequelae]
  - Delirium [Unknown]

NARRATIVE: CASE EVENT DATE: 201603
